FAERS Safety Report 23705681 (Version 1)
Quarter: 2024Q2

REPORT INFORMATION
  Report Type: Spontaneous
  Country: US (occurrence: US)
  Receive Date: 20240404
  Receipt Date: 20240404
  Transmission Date: 20240716
  Serious: No
  Sender: FDA-Public Use
  Company Number: US-GSKCCFUS-Case-01972172_AE-109580

PATIENT
  Age: 37 Year
  Sex: Male

DRUGS (1)
  1. NUCALA [Suspect]
     Active Substance: MEPOLIZUMAB
     Indication: Product used for unknown indication
     Dosage: 100 MG
     Dates: end: 20240325

REACTIONS (4)
  - Presyncope [Unknown]
  - Blood pressure decreased [Unknown]
  - Dizziness [Unknown]
  - Illness [Unknown]
